FAERS Safety Report 8421775-0 (Version None)
Quarter: 2012Q2

REPORT INFORMATION
  Report Type: 
  Country: None (occurrence: None)
  Receive Date: 20120608
  Receipt Date: 20120531
  Transmission Date: 20120825
  Serious: Yes (Other)
  Sender: FDA-Public Use
  Company Number: AU-PFIZER INC-2012120201

PATIENT
  Age: 51 Year
  Sex: Female

DRUGS (3)
  1. IBUPROFEN [Suspect]
     Indication: ARTHRALGIA
  2. ASPIRIN [Suspect]
     Indication: UPPER RESPIRATORY TRACT INFECTION
  3. PREDNISONE [Concomitant]
     Indication: UPPER RESPIRATORY TRACT INFECTION

REACTIONS (3)
  - THROAT TIGHTNESS [None]
  - ANGIOEDEMA [None]
  - URTICARIA [None]
